FAERS Safety Report 21337410 (Version 1)
Quarter: 2022Q3

REPORT INFORMATION
  Report Type: Spontaneous
  Country: US (occurrence: None)
  Receive Date: 20220914
  Receipt Date: 20220914
  Transmission Date: 20221026
  Serious: No
  Sender: FDA-Public Use
  Company Number: None

PATIENT
  Age: 81 Year
  Sex: Female

DRUGS (1)
  1. DUPIXENT [Suspect]
     Active Substance: DUPILUMAB
     Indication: Nasal polyps
     Dosage: OTHER FREQUENCY : EVEREST 2 WEEKS;?
     Route: 030
     Dates: start: 20220810

REACTIONS (2)
  - Injection site rash [None]
  - Wrong technique in device usage process [None]

NARRATIVE: CASE EVENT DATE: 20220908
